FAERS Safety Report 8470773-X (Version None)
Quarter: 2012Q2

REPORT INFORMATION
  Report Type: 
  Country: None (occurrence: None)
  Receive Date: 20120620
  Receipt Date: 20120607
  Transmission Date: 20120825
  Serious: Yes (Hospitalization)
  Sender: FDA-Public Use
  Company Number: KAD201206-000339

PATIENT
  Age: 44 Year
  Sex: Male

DRUGS (2)
  1. PEGINTERFERON ALFA-2A [Suspect]
     Indication: HEPATITIS C
     Dosage: 180 UG/WK
  2. RIBAVIRIN [Suspect]
     Indication: HEPATITIS C
     Dosage: 1,200 MG/DAY 1,600 MG/DAY

REACTIONS (7)
  - ASTHENIA [None]
  - MUSCULOSKELETAL PAIN [None]
  - PULMONARY TUBERCULOSIS [None]
  - VIROLOGIC FAILURE [None]
  - COUGH [None]
  - HAEMOPTYSIS [None]
  - IRRITABILITY [None]
